FAERS Safety Report 14127670 (Version 1)
Quarter: 2017Q4

REPORT INFORMATION
  Report Type: Report from Study
  Country: US (occurrence: US)
  Receive Date: 20171026
  Receipt Date: 20171026
  Transmission Date: 20180321
  Serious: Yes (Other)
  Sender: FDA-Public Use
  Company Number: PHEH2017US033960

PATIENT
  Sex: Female

DRUGS (1)
  1. ENTRESTO [Suspect]
     Active Substance: SACUBITRIL\VALSARTAN
     Indication: CARDIAC FAILURE CONGESTIVE
     Dosage: UNK
     Route: 065
     Dates: start: 201704

REACTIONS (5)
  - Lupus nephritis [Unknown]
  - Rheumatoid arthritis [Unknown]
  - Feeling abnormal [Unknown]
  - Multiple sclerosis [Unknown]
  - Cardiac failure chronic [Unknown]
